FAERS Safety Report 18435208 (Version 1)
Quarter: 2020Q4

REPORT INFORMATION
  Report Type: Spontaneous
  Country: US (occurrence: US)
  Receive Date: 20201027
  Receipt Date: 20201027
  Transmission Date: 20210114
  Serious: No
  Sender: FDA-Public Use
  Company Number: US-009507513-2010USA009328

PATIENT
  Age: 22 Year
  Sex: Female

DRUGS (1)
  1. ETONOGESTREL IMPLANT [Suspect]
     Active Substance: ETONOGESTREL
     Dosage: 1 DOSAGE FORM (IMPLANT) IN LEFT ARM
     Route: 059
     Dates: start: 2015, end: 20191001

REACTIONS (4)
  - Complication of device removal [Recovered/Resolved]
  - Device placement issue [Recovered/Resolved]
  - Incorrect product administration duration [Unknown]
  - Complication associated with device [Recovered/Resolved]
